FAERS Safety Report 24870731 (Version 1)
Quarter: 2025Q1

REPORT INFORMATION
  Report Type: Spontaneous
  Country: US (occurrence: US)
  Receive Date: 20250121
  Receipt Date: 20250121
  Transmission Date: 20250408
  Serious: No
  Sender: ALEXION PHARMACEUTICALS
  Company Number: US-ASTRAZENECA-202501USA015243US

PATIENT

DRUGS (4)
  1. CRESTOR [Suspect]
     Active Substance: ROSUVASTATIN CALCIUM
  2. HYDROCHLOROTHIAZIDE\METOPROLOL SUCCINATE [Suspect]
     Active Substance: HYDROCHLOROTHIAZIDE\METOPROLOL SUCCINATE
     Route: 065
  3. ENTRESTO [Suspect]
     Active Substance: SACUBITRIL\VALSARTAN
  4. CANNABIDIOL [Suspect]
     Active Substance: CANNABIDIOL

REACTIONS (18)
  - Myositis [Unknown]
  - Stress [Unknown]
  - Drug hypersensitivity [Unknown]
  - Myalgia [Unknown]
  - Inappropriate schedule of product administration [Unknown]
  - Diarrhoea [Unknown]
  - Product dose omission issue [Unknown]
  - Hypotension [Unknown]
  - Gluten sensitivity [Unknown]
  - Dizziness [Unknown]
  - Gastrointestinal pain [Unknown]
  - Chills [Unknown]
  - Weight increased [Unknown]
  - Anxiety [Unknown]
  - Abdominal pain upper [Unknown]
  - Pyrexia [Unknown]
  - Pain in extremity [Unknown]
  - Malaise [Unknown]
